FAERS Safety Report 18157102 (Version 2)
Quarter: 2020Q3

REPORT INFORMATION
  Report Type: Spontaneous
  Country: None (occurrence: JP)
  Receive Date: 20200817
  Receipt Date: 20200827
  Transmission Date: 20201103
  Serious: Yes (Hospitalization, Other)
  Sender: FDA-Public Use
  Company Number: JP-BOEHRINGERINGELHEIM-2016-BI-071243

PATIENT

DRUGS (20)
  1. HARNAL [Suspect]
     Active Substance: TAMSULOSIN HYDROCHLORIDE
     Dosage: UNK, TABLET
     Route: 048
  2. BICALUTAMIDE. [Concomitant]
     Active Substance: BICALUTAMIDE
     Route: 065
  3. ULGUT [Concomitant]
     Route: 065
  4. ZOLADEX [Concomitant]
     Active Substance: GOSERELIN ACETATE
     Route: 065
  5. ADETPHOS [Concomitant]
     Active Substance: ADENOSINE TRIPHOSPHATE
     Route: 065
  6. FLUTAMIDE. [Concomitant]
     Active Substance: FLUTAMIDE
     Route: 065
  7. ACINON [NIZATIDINE] [Concomitant]
     Route: 065
  8. EPADEL [Concomitant]
     Active Substance: ICOSAPENT
     Route: 065
  9. XTANDI [Interacting]
     Active Substance: ENZALUTAMIDE
     Indication: HORMONE-REFRACTORY PROSTATE CANCER
     Dosage: 80 MG, QD
     Route: 048
  10. METHYCOBAL [Concomitant]
     Active Substance: METHYLCOBALAMIN
     Route: 065
  11. CONSTAN [Concomitant]
     Route: 065
  12. SPIRIVA [Concomitant]
     Active Substance: TIOTROPIUM BROMIDE MONOHYDRATE
     Route: 065
  13. LIVALO [Concomitant]
     Active Substance: PITAVASTATIN CALCIUM
     Route: 065
  14. CELECOX [Interacting]
     Active Substance: CELECOXIB
     Dosage: TABLET
     Route: 048
  15. XTANDI [Interacting]
     Active Substance: ENZALUTAMIDE
     Indication: HORMONE-REFRACTORY PROSTATE CANCER
     Dosage: 160 MG, QD
     Route: 048
     Dates: start: 20160929, end: 20161011
  16. XTANDI [Interacting]
     Active Substance: ENZALUTAMIDE
     Dosage: GRADUALLY INCREASEDUNKNOWN FREQUENCY;
     Route: 048
  17. ALLEGRA [Concomitant]
     Active Substance: FEXOFENADINE HYDROCHLORIDE
     Route: 065
  18. XTANDI [Interacting]
     Active Substance: ENZALUTAMIDE
     Dosage: 160 UNK
  19. ARTIST [Concomitant]
     Active Substance: CARVEDILOL
     Route: 065
  20. NAUZELIN [Concomitant]
     Active Substance: DOMPERIDONE
     Route: 065

REACTIONS (3)
  - Thrombocytopenia [Recovered/Resolved]
  - Intentional product misuse [Unknown]
  - Seizure [Recovering/Resolving]
